FAERS Safety Report 7336981-6 (Version None)
Quarter: 2011Q1

REPORT INFORMATION
  Report Type: 
  Country: None (occurrence: None)
  Receive Date: 20110228
  Receipt Date: 20110214
  Transmission Date: 20110831
  Serious: Yes (Death)
  Sender: FDA-Public Use
  Company Number: DSA_44380_2010

PATIENT
  Sex: Female

DRUGS (9)
  1. XENAZINE [Suspect]
     Indication: TARDIVE DYSKINESIA
     Dosage: SEE IMAGE
     Route: 048
     Dates: start: 20091002, end: 20100527
  2. XENAZINE [Suspect]
     Indication: TARDIVE DYSKINESIA
     Dosage: SEE IMAGE
     Route: 048
     Dates: start: 20100528
  3. XENAZINE [Suspect]
     Indication: TARDIVE DYSKINESIA
     Dosage: SEE IMAGE
     Route: 048
     Dates: end: 20091001
  4. POTASSIUM CHLORIDE [Concomitant]
  5. TRIAMTERENE AND HYDROCHLOROTHIAZIDE [Concomitant]
  6. FERROUS SULFATE TAB [Concomitant]
  7. METOPROLOL TARTRATE [Concomitant]
  8. GLIPIZIDE [Concomitant]
  9. AVANDIA [Concomitant]

REACTIONS (4)
  - MYALGIA [None]
  - EXTRAPYRAMIDAL DISORDER [None]
  - GAIT DISTURBANCE [None]
  - OSTEOARTHRITIS [None]
